FAERS Safety Report 5786178-6 (Version None)
Quarter: 2008Q2

REPORT INFORMATION
  Report Type: 
  Country: None (occurrence: None)
  Receive Date: 20080624
  Receipt Date: 20080617
  Transmission Date: 20081010
  Serious: Yes (Other)
  Sender: FDA-Public Use
  Company Number: B0361288A

PATIENT
  Sex: Male

DRUGS (7)
  1. PAROXETINE HCL [Suspect]
     Indication: OBSESSIVE-COMPULSIVE DISORDER
     Route: 065
     Dates: start: 19961211, end: 20030201
  2. CLOMIPRAMINE HCL [Concomitant]
     Indication: OBSESSIVE-COMPULSIVE DISORDER
     Dates: start: 20031218
  3. PROZAC [Concomitant]
     Dates: start: 20030918
  4. ESCITALOPRAM [Concomitant]
     Dates: start: 20030613
  5. CIPRAMIL [Concomitant]
     Dates: start: 20020418
  6. EFFEXOR [Concomitant]
     Dates: start: 20020610
  7. TRAZODONE HCL [Concomitant]
     Dates: end: 20040101

REACTIONS (18)
  - AGGRESSION [None]
  - AGITATION [None]
  - AMNESIA [None]
  - ANGER [None]
  - ANXIETY [None]
  - CONFUSIONAL STATE [None]
  - DEPERSONALISATION [None]
  - DISORIENTATION [None]
  - FATIGUE [None]
  - HYPERHIDROSIS [None]
  - IRRITABILITY [None]
  - MOOD SWINGS [None]
  - OBSESSIVE-COMPULSIVE DISORDER [None]
  - PALPITATIONS [None]
  - PANIC ATTACK [None]
  - PARAESTHESIA [None]
  - PHOBIA [None]
  - WITHDRAWAL SYNDROME [None]
